FAERS Safety Report 23123334 (Version 2)
Quarter: 2024Q1

REPORT INFORMATION
  Report Type: Report from Study
  Country: US (occurrence: US)
  Receive Date: 20231030
  Receipt Date: 20240320
  Transmission Date: 20240409
  Serious: Yes (Hospitalization)
  Sender: FDA-Public Use
  Company Number: US-Merck Healthcare KGaA-2023483230

PATIENT
  Age: 64 Year
  Sex: Male

DRUGS (1)
  1. SEROSTIM [Suspect]
     Active Substance: SOMATROPIN
     Indication: HIV wasting syndrome
     Dosage: STARTED FROM THE PAST 11 YEARS.
     Route: 058

REACTIONS (2)
  - Hip fracture [Unknown]
  - Upper limb fracture [Unknown]
